FAERS Safety Report 13507904 (Version 1)
Quarter: 2017Q2

REPORT INFORMATION
  Report Type: Spontaneous
  Country: US (occurrence: US)
  Receive Date: 20170503
  Receipt Date: 20170503
  Transmission Date: 20170830
  Serious: Yes (Other)
  Sender: FDA-Public Use
  Company Number: None

PATIENT
  Age: 49 Year
  Sex: Female
  Weight: 69.5 kg

DRUGS (1)
  1. ROCEPHIN [Suspect]
     Active Substance: CEFTRIAXONE SODIUM
     Indication: MYCOPLASMA INFECTION
     Dosage: 2GM Q12H X4D THEN OFF 3 DAYS IV
     Route: 042
     Dates: start: 20170421, end: 20170430

REACTIONS (5)
  - Tongue discomfort [None]
  - Muscle spasms [None]
  - Chest pain [None]
  - Oral discomfort [None]
  - Visual field defect [None]

NARRATIVE: CASE EVENT DATE: 20170501
